FAERS Safety Report 11723293 (Version 2)
Quarter: 2015Q4

REPORT INFORMATION
  Report Type: Spontaneous
  Country: NL (occurrence: NL)
  Receive Date: 20151111
  Receipt Date: 20151118
  Transmission Date: 20160304
  Serious: Yes (Death)
  Sender: FDA-Public Use
  Company Number: NL-PFIZER INC-2015379006

PATIENT
  Age: 83 Year
  Sex: Female

DRUGS (9)
  1. AZITHROMYCIN [Suspect]
     Active Substance: AZITHROMYCIN ANHYDROUS
     Indication: PNEUMONIA
     Dosage: 500 MG, UNK
     Route: 048
     Dates: start: 20151020
  2. ACENOCOUMAROL [Interacting]
     Active Substance: ACENOCOUMAROL
     Indication: PERIPHERAL ARTERY THROMBOSIS
     Dosage: ACCORDING TO THE SCHEDULE OF THE THROMBOSIS SERVICE
     Route: 048
     Dates: start: 2006
  3. RABEPRAZOL SODICO [Concomitant]
     Dosage: 20 MG, UNK
     Route: 048
     Dates: start: 201502
  4. COLECALCIFEROL [Concomitant]
     Active Substance: CHOLECALCIFEROL
     Dosage: 800 IU, UNK
     Route: 048
     Dates: start: 201502
  5. ACENOCOUMAROL [Interacting]
     Active Substance: ACENOCOUMAROL
     Indication: PERIPHERAL ARTERY THROMBOSIS
  6. PREGABALIN. [Concomitant]
     Active Substance: PREGABALIN
     Dosage: 75 MG, UNK
     Route: 048
     Dates: start: 2014
  7. ETORICOXIB [Concomitant]
     Active Substance: ETORICOXIB
     Dosage: 60 MG, UNK
     Route: 048
     Dates: start: 201411
  8. OXYCODON [Concomitant]
     Active Substance: OXYCODONE
     Dosage: 10 MG, UNK
     Route: 048
     Dates: start: 2014
  9. CARBAMAZEPINE A [Concomitant]
     Dosage: 400 MG, UNK
     Route: 048
     Dates: start: 2014

REACTIONS (4)
  - Drug interaction [Fatal]
  - Nausea [Unknown]
  - Coagulation time prolonged [Fatal]
  - Vomiting [Unknown]

NARRATIVE: CASE EVENT DATE: 20151020
